FAERS Safety Report 4439918-2 (Version None)
Quarter: 2004Q3

REPORT INFORMATION
  Report Type: 
  Country: None (occurrence: None)
  Receive Date: 20040902
  Receipt Date: 20040827
  Transmission Date: 20050211
  Serious: Yes (Death, Hospitalization)
  Sender: FDA-Public Use
  Company Number: PHEH2004US09338

PATIENT
  Sex: Female

DRUGS (1)
  1. LOPRESSOR [Suspect]
     Dosage: UNK/UNK

REACTIONS (2)
  - BLOOD GLUCOSE DECREASED [None]
  - BRAIN DAMAGE [None]
